FAERS Safety Report 5190312-9 (Version None)
Quarter: 2006Q4

REPORT INFORMATION
  Report Type: 
  Country: None (occurrence: None)
  Receive Date: 20061222
  Receipt Date: 20061215
  Transmission Date: 20070319
  Serious: Yes (Hospitalization, Other)
  Sender: FDA-Public Use
  Company Number: 2006UW28104

PATIENT
  Sex: Male

DRUGS (7)
  1. CASODEX [Suspect]
     Route: 048
     Dates: start: 19980101
  2. DIOVAN [Concomitant]
  3. ATENOLOL [Concomitant]
  4. PLAVIX [Concomitant]
  5. ASPIRIN [Concomitant]
  6. ALLOPURINOL [Concomitant]
  7. SIMVASTATIN [Concomitant]

REACTIONS (2)
  - OSTEONECROSIS [None]
  - PULMONARY EMBOLISM [None]
